FAERS Safety Report 8282816-7 (Version None)
Quarter: 2012Q2

REPORT INFORMATION
  Report Type: 
  Country: None (occurrence: None)
  Receive Date: 20120413
  Receipt Date: 20120406
  Transmission Date: 20120825
  Serious: Yes (Hospitalization)
  Sender: FDA-Public Use
  Company Number: PHHY2012JP030061

PATIENT
  Age: 94 Year
  Sex: Female

DRUGS (8)
  1. IRGAS [Concomitant]
     Dosage: 4 MG, UNK
     Route: 048
  2. TRANDOLAPRIL [Concomitant]
     Dosage: 1 MG, UNK
     Route: 048
  3. ETODOLAC [Concomitant]
     Dosage: 400 MG, UNK
     Route: 048
  4. EXELON [Suspect]
     Indication: DEMENTIA ALZHEIMER'S TYPE
     Dosage: 4.5 MG/24 HOURS
     Route: 062
     Dates: start: 20120319
  5. ALDACTONE [Concomitant]
     Dosage: 25 MG, UNK
     Route: 048
  6. DIGOXIN [Concomitant]
     Dosage: UNK UKN, UNK
     Route: 048
  7. ASPIRIN [Concomitant]
     Dosage: 100 MG, UNK
     Route: 048
  8. BLOSTAR M [Concomitant]
     Dosage: UNK UKN, UNK
     Route: 048

REACTIONS (4)
  - CEREBRAL INFARCTION [None]
  - HEMIPLEGIA [None]
  - COMA SCALE ABNORMAL [None]
  - FALL [None]
